FAERS Safety Report 5525641-X (Version None)
Quarter: 2007Q4

REPORT INFORMATION
  Report Type: 
  Country: None (occurrence: None)
  Receive Date: 20071120
  Receipt Date: 20071120
  Transmission Date: 20080405
  Serious: Yes (Other)
  Sender: FDA-Public Use
  Company Number: None

PATIENT
  Age: 31 Year
  Sex: Male
  Weight: 61.2356 kg

DRUGS (4)
  1. METOCLOPRAMIDE [Suspect]
     Indication: ANOREXIA
     Dosage: 1   6 HOURS  PO
     Route: 048
     Dates: start: 20071103, end: 20071104
  2. METOCLOPRAMIDE [Suspect]
     Indication: BLOOD PRESSURE INCREASED
     Dosage: 1   6 HOURS  PO
     Route: 048
     Dates: start: 20071103, end: 20071104
  3. METOCLOPRAMIDE [Suspect]
     Indication: ANOREXIA
     Dosage: 1   6 HOURS  PO
     Route: 048
     Dates: start: 20071112, end: 20071112
  4. METOCLOPRAMIDE [Suspect]
     Indication: BLOOD PRESSURE INCREASED
     Dosage: 1   6 HOURS  PO
     Route: 048
     Dates: start: 20071112, end: 20071112

REACTIONS (5)
  - DECREASED APPETITE [None]
  - DIARRHOEA [None]
  - HYPERHIDROSIS [None]
  - MALAISE [None]
  - MUSCLE TWITCHING [None]
